FAERS Safety Report 13091826 (Version 2)
Quarter: 2017Q1

REPORT INFORMATION
  Report Type: Spontaneous
  Country: US (occurrence: US)
  Receive Date: 20170106
  Receipt Date: 20170109
  Transmission Date: 20170428
  Serious: No
  Sender: FDA-Public Use
  Company Number: US-BAYER-2017-003093

PATIENT
  Age: 46 Year
  Sex: Female
  Weight: 56.24 kg

DRUGS (1)
  1. ALEVE [Suspect]
     Active Substance: NAPROXEN SODIUM
     Indication: PAIN
     Dosage: 1 DF, PRN
     Route: 048

REACTIONS (2)
  - Intentional product misuse [Unknown]
  - Allergy to chemicals [Recovering/Resolving]

NARRATIVE: CASE EVENT DATE: 201610
